FAERS Safety Report 25475801 (Version 1)
Quarter: 2025Q2

REPORT INFORMATION
  Report Type: Report from Study
  Country: US (occurrence: US)
  Receive Date: 20250624
  Receipt Date: 20250624
  Transmission Date: 20250716
  Serious: Yes (Hospitalization)
  Sender: ABBVIE
  Company Number: US-ABBVIE-6336787

PATIENT
  Age: 41 Year
  Sex: Female

DRUGS (1)
  1. RINVOQ [Suspect]
     Active Substance: UPADACITINIB
     Indication: Psoriatic arthropathy
     Route: 048
     Dates: start: 20240417

REACTIONS (3)
  - Pyrexia [Recovered/Resolved]
  - Pharyngeal disorder [Recovering/Resolving]
  - Haemophilus infection [Unknown]

NARRATIVE: CASE EVENT DATE: 20250524
